FAERS Safety Report 9877162 (Version 2)
Quarter: 2014Q1

REPORT INFORMATION
  Report Type: Spontaneous
  Country: US (occurrence: US)
  Receive Date: 20140206
  Receipt Date: 20140325
  Transmission Date: 20141002
  Serious: Yes (Other)
  Sender: FDA-Public Use
  Company Number: US-AMGEN-USASP2014008073

PATIENT
  Age: 49 Year
  Sex: Male

DRUGS (2)
  1. ENBREL [Suspect]
     Indication: RHEUMATOID ARTHRITIS
     Dosage: 50 MG, QWK
     Route: 058
     Dates: start: 20130601
  2. METHOTREXATE [Concomitant]
     Dosage: 1 ML, QWK
     Route: 058
     Dates: start: 201211

REACTIONS (8)
  - Loss of consciousness [Recovered/Resolved]
  - Unresponsive to stimuli [Recovered/Resolved]
  - Memory impairment [Recovered/Resolved]
  - Intervertebral disc protrusion [Recovering/Resolving]
  - Muscle rigidity [Recovered/Resolved]
  - Eye disorder [Recovered/Resolved]
  - Drooling [Recovered/Resolved]
  - Joint contracture [Unknown]
